FAERS Safety Report 7002584-6 (Version None)
Quarter: 2010Q3

REPORT INFORMATION
  Report Type: 
  Country: None (occurrence: None)
  Receive Date: 20100920
  Receipt Date: 20070522
  Transmission Date: 20110219
  Serious: Yes (Other)
  Sender: FDA-Public Use
  Company Number: US-ASTRAZENECA-2006UW23330

PATIENT
  Age: 39 Year
  Sex: Female
  Weight: 104.3 kg

DRUGS (14)
  1. SEROQUEL [Suspect]
     Indication: SLEEP DISORDER
     Route: 048
     Dates: start: 20020101
  2. SEROQUEL [Suspect]
     Indication: SEDATION
     Route: 048
     Dates: start: 20020101
  3. SEROQUEL [Suspect]
     Indication: STRESS
     Route: 048
     Dates: start: 20020101
  4. SEROQUEL [Suspect]
     Indication: ANXIETY
     Route: 048
     Dates: start: 20020101
  5. SEROQUEL [Suspect]
     Indication: DEPRESSION
     Route: 048
     Dates: start: 20020101
  6. SEROQUEL [Suspect]
     Dosage: 25 MG QHS TO 200 MG 1/2 TAB BID
     Route: 048
     Dates: start: 20040730
  7. SEROQUEL [Suspect]
     Dosage: 25 MG QHS TO 200 MG 1/2 TAB BID
     Route: 048
     Dates: start: 20040730
  8. SEROQUEL [Suspect]
     Dosage: 25 MG QHS TO 200 MG 1/2 TAB BID
     Route: 048
     Dates: start: 20040730
  9. SEROQUEL [Suspect]
     Dosage: 25 MG QHS TO 200 MG 1/2 TAB BID
     Route: 048
     Dates: start: 20040730
  10. SEROQUEL [Suspect]
     Dosage: 25 MG QHS TO 200 MG 1/2 TAB BID
     Route: 048
     Dates: start: 20040730
  11. LEXAPRO [Concomitant]
     Route: 048
     Dates: start: 20040730
  12. LEXAPRO [Concomitant]
  13. PEPCID [Concomitant]
     Route: 048
     Dates: start: 20040615
  14. DIFLUCAN [Concomitant]
     Indication: CANDIDIASIS
     Dosage: 150 MG ONE
     Route: 048
     Dates: start: 20040730

REACTIONS (12)
  - ABDOMINAL PAIN [None]
  - CELLULITIS [None]
  - DIABETES MELLITUS [None]
  - DIABETES MELLITUS INADEQUATE CONTROL [None]
  - DIABETIC KETOACIDOSIS [None]
  - DYSPEPSIA [None]
  - ESSENTIAL HYPERTENSION [None]
  - GASTROOESOPHAGEAL REFLUX DISEASE [None]
  - HYPERTENSION [None]
  - IRRITABLE BOWEL SYNDROME [None]
  - PANCREATITIS [None]
  - TYPE 2 DIABETES MELLITUS [None]
